FAERS Safety Report 11011944 (Version 2)
Quarter: 2015Q2

REPORT INFORMATION
  Report Type: Spontaneous
  Country: US (occurrence: US)
  Receive Date: 20150410
  Receipt Date: 20150525
  Transmission Date: 20150821
  Serious: No
  Sender: FDA-Public Use
  Company Number: US-JNJFOC-20120518999

PATIENT
  Age: 37 Year
  Sex: Male
  Weight: 58.6 kg

DRUGS (1)
  1. REMICADE [Suspect]
     Active Substance: INFLIXIMAB
     Indication: PRODUCT USED FOR UNKNOWN INDICATION
     Route: 042

REACTIONS (3)
  - Drug dose omission [Unknown]
  - Dehydration [Unknown]
  - Vein disorder [Unknown]

NARRATIVE: CASE EVENT DATE: 20120517
